FAERS Safety Report 8338564-8 (Version None)
Quarter: 2012Q2

REPORT INFORMATION
  Report Type: 
  Country: None (occurrence: None)
  Receive Date: 20120504
  Receipt Date: 20120424
  Transmission Date: 20120825
  Serious: Yes (Hospitalization)
  Sender: FDA-Public Use
  Company Number: US-MYLANLABS-2012S1008508

PATIENT
  Sex: Male

DRUGS (1)
  1. SOTRADECOL [Suspect]
     Indication: SCLEROTHERAPY
     Route: 042
     Dates: start: 20120312, end: 20120312

REACTIONS (2)
  - RENAL FAILURE [None]
  - HEPATIC FAILURE [None]
